FAERS Safety Report 15386453 (Version 1)
Quarter: 2018Q3

REPORT INFORMATION
  Report Type: Spontaneous
  Country: US (occurrence: US)
  Receive Date: 20180914
  Receipt Date: 20180914
  Transmission Date: 20181010
  Serious: Yes (Other)
  Sender: FDA-Public Use
  Company Number: US-UNITED THERAPEUTICS-UNT-2018-014625

PATIENT
  Sex: Female
  Weight: 55.33 kg

DRUGS (1)
  1. TYVASO [Suspect]
     Active Substance: TREPROSTINIL
     Indication: PULMONARY ARTERIAL HYPERTENSION
     Dosage: 18?54 ?G, QID
     Dates: start: 20091217

REACTIONS (5)
  - Atrial fibrillation [Unknown]
  - Heart rate increased [Unknown]
  - Lung neoplasm malignant [Unknown]
  - Dizziness [Unknown]
  - Cough [Not Recovered/Not Resolved]
